FAERS Safety Report 17028926 (Version 1)
Quarter: 2019Q4

REPORT INFORMATION
  Report Type: Spontaneous
  Country: US (occurrence: US)
  Receive Date: 20191114
  Receipt Date: 20191114
  Transmission Date: 20200122
  Serious: Yes (Death)
  Sender: FDA-Public Use
  Company Number: US-ROCHE-2461268

PATIENT
  Sex: Male

DRUGS (1)
  1. XOLAIR [Suspect]
     Active Substance: OMALIZUMAB
     Indication: INTERSTITIAL LUNG DISEASE
     Route: 058
     Dates: start: 20170513

REACTIONS (3)
  - Intentional product use issue [Unknown]
  - Off label use [Unknown]
  - Cardiac arrest [Fatal]
